FAERS Safety Report 14918158 (Version 2)
Quarter: 2018Q2

REPORT INFORMATION
  Report Type: Report from Study
  Country: CH (occurrence: CH)
  Receive Date: 20180521
  Receipt Date: 20180531
  Transmission Date: 20180711
  Serious: Yes (Hospitalization)
  Sender: FDA-Public Use
  Company Number: CH-ROCHE-2121153

PATIENT
  Age: 46 Year

DRUGS (1)
  1. OBINUTUZUMAB. [Suspect]
     Active Substance: OBINUTUZUMAB
     Indication: B-CELL LYMPHOMA
     Dosage: DATE OF LAST DOSE PRIOR TO SAE: 03/MAY/2018
     Route: 042
     Dates: start: 20180503

REACTIONS (2)
  - Aspartate aminotransferase increased [Recovered/Resolved with Sequelae]
  - Pneumonitis [Unknown]

NARRATIVE: CASE EVENT DATE: 20180504
